FAERS Safety Report 7904959-7 (Version None)
Quarter: 2011Q4

REPORT INFORMATION
  Report Type: 
  Country: None (occurrence: None)
  Receive Date: 20111109
  Receipt Date: 20111101
  Transmission Date: 20120403
  Serious: Yes (Hospitalization, Other)
  Sender: FDA-Public Use
  Company Number: PHEH2009US07511

PATIENT
  Sex: Female
  Weight: 63.6 kg

DRUGS (22)
  1. AVASTIN [Concomitant]
  2. LIDOCAINE [Concomitant]
  3. XANAX [Concomitant]
  4. PREVACID [Concomitant]
  5. RESTORIL [Concomitant]
  6. REGLAN [Concomitant]
  7. AREDIA [Suspect]
  8. ZOMETA [Suspect]
     Dosage: 4 MG, QMO
     Route: 042
  9. METHADONE HCL [Concomitant]
     Dosage: 10 MG, TID
     Route: 048
  10. VICODIN [Concomitant]
  11. CYMBALTA [Concomitant]
     Dosage: 60 MG, QD
     Route: 048
  12. PROPOFOL [Concomitant]
  13. LYRICA [Concomitant]
  14. WELLBUTRIN [Concomitant]
  15. LEXAPRO [Concomitant]
  16. COUMADIN [Concomitant]
  17. FENTANYL-100 [Concomitant]
  18. FLEXERIL [Concomitant]
  19. TRAZODONE HYDROCHLORIDE [Concomitant]
  20. SYNTHROID [Concomitant]
  21. ABRAXANE [Concomitant]
  22. ACCUPRIL [Concomitant]

REACTIONS (56)
  - NEOPLASM MALIGNANT [None]
  - DYSPHONIA [None]
  - GASTROOESOPHAGEAL REFLUX DISEASE [None]
  - OSTEOARTHRITIS [None]
  - BREAST CANCER METASTATIC [None]
  - ORAL PAIN [None]
  - GASTROINTESTINAL HAEMORRHAGE [None]
  - OEDEMA PERIPHERAL [None]
  - DRY MOUTH [None]
  - WEIGHT DECREASED [None]
  - GENERAL PHYSICAL HEALTH DETERIORATION [None]
  - ANHEDONIA [None]
  - ANXIETY [None]
  - METASTASES TO LIVER [None]
  - PULMONARY HILUM MASS [None]
  - NORMOCHROMIC NORMOCYTIC ANAEMIA [None]
  - ANIMAL BITE [None]
  - RASH ERYTHEMATOUS [None]
  - PNEUMONIA [None]
  - PYREXIA [None]
  - ARTHRALGIA [None]
  - HIATUS HERNIA [None]
  - LUMBAR SPINAL STENOSIS [None]
  - HALLUCINATION [None]
  - DEPRESSION [None]
  - INTERVERTEBRAL DISC DEGENERATION [None]
  - INTERVERTEBRAL DISC PROTRUSION [None]
  - HYPERCHOLESTEROLAEMIA [None]
  - SYNOVITIS [None]
  - ARTHROPATHY [None]
  - NEOPLASM PROGRESSION [None]
  - COUGH [None]
  - HYPERTENSION [None]
  - STOMATITIS [None]
  - MOUTH ULCERATION [None]
  - BACK PAIN [None]
  - JOINT SWELLING [None]
  - PULMONARY EMBOLISM [None]
  - NIGHT SWEATS [None]
  - METASTASES TO BONE [None]
  - HYPOTHYROIDISM [None]
  - INJURY [None]
  - PAIN [None]
  - BRONCHITIS [None]
  - EPISTAXIS [None]
  - DYSPNOEA EXERTIONAL [None]
  - CONFUSIONAL STATE [None]
  - NEUROPATHY PERIPHERAL [None]
  - SPONDYLOLISTHESIS [None]
  - OSTEONECROSIS OF JAW [None]
  - DIARRHOEA [None]
  - HAEMOPTYSIS [None]
  - WEIGHT INCREASED [None]
  - MENTAL STATUS CHANGES [None]
  - TACHYCARDIA [None]
  - DEEP VEIN THROMBOSIS [None]
